FAERS Safety Report 9410299 (Version 1)
Quarter: 2013Q3

REPORT INFORMATION
  Report Type: Spontaneous
  Country: PT (occurrence: PT)
  Receive Date: 20130719
  Receipt Date: 20130719
  Transmission Date: 20140515
  Serious: Yes (Hospitalization)
  Sender: FDA-Public Use
  Company Number: PT-GILEAD-2013-0079139

PATIENT
  Sex: Female

DRUGS (3)
  1. TRUVADA [Suspect]
     Indication: HIV INFECTION
  2. DARUNAVIR [Concomitant]
     Indication: HIV INFECTION
  3. RITONAVIR [Concomitant]
     Indication: HIV INFECTION

REACTIONS (3)
  - Sepsis [Unknown]
  - Systemic candida [Unknown]
  - Renal failure [Unknown]
